FAERS Safety Report 20034127 (Version 7)
Quarter: 2023Q4

REPORT INFORMATION
  Report Type: Spontaneous
  Country: US (occurrence: US)
  Receive Date: 20211104
  Receipt Date: 20231003
  Transmission Date: 20240110
  Serious: No
  Sender: FDA-Public Use
  Company Number: US-PFIZER INC-2021562584

PATIENT
  Age: 68 Year
  Sex: Female

DRUGS (1)
  1. IBRANCE [Suspect]
     Active Substance: PALBOCICLIB
     Indication: Breast cancer metastatic
     Dosage: 125 MG, CYCLIC (1 TAB ONCE A DAY FOR 14 DAYS FOLLOWED BY 14 DAYS OFF)
     Route: 048

REACTIONS (2)
  - Neoplasm progression [Unknown]
  - Infection [Unknown]
